FAERS Safety Report 8294072-4 (Version None)
Quarter: 2012Q2

REPORT INFORMATION
  Report Type: 
  Country: None (occurrence: None)
  Receive Date: 20120418
  Receipt Date: 20120410
  Transmission Date: 20120825
  Serious: Yes (Hospitalization, Other)
  Sender: FDA-Public Use
  Company Number: US-BAYER-2011-114252

PATIENT
  Age: 43 Year
  Sex: Female
  Weight: 56.69 kg

DRUGS (11)
  1. OMEPRAZOLE [Concomitant]
     Dosage: 20 MG, BID
  2. ALPRAZOLAM [Concomitant]
     Dosage: 0.25 MG, 1 EVERY NIGHT AS NEEDED
     Dates: start: 20080725
  3. YAZ [Suspect]
     Indication: CONTRACEPTION
     Dosage: UNK
     Route: 048
     Dates: start: 20070101, end: 20100101
  4. PANDEL [Concomitant]
     Dosage: UNK
     Route: 061
     Dates: start: 20080716, end: 20080908
  5. MULTI-VITAMIN [Concomitant]
     Dosage: UNK UNK, QD
  6. CARAFATE [Concomitant]
     Dosage: 10 ML, EVERY NIGHT
     Dates: start: 20080908
  7. PRILOSEC [Concomitant]
     Dosage: UNK UNK, BID
  8. BENADRYL [Concomitant]
  9. CALCIUM W/VITAMIN D NOS [Concomitant]
  10. COMPAZINE [Concomitant]
  11. PREDNISONE TAB [Concomitant]
     Indication: DERMATITIS CONTACT
     Dosage: 20 MG, UNK
     Dates: start: 20080716

REACTIONS (9)
  - CHOLELITHIASIS [None]
  - ABDOMINAL PAIN [None]
  - PAIN [None]
  - MENTAL DISORDER [None]
  - CHOLECYSTITIS CHRONIC [None]
  - INJURY [None]
  - ANXIETY [None]
  - GENERAL PHYSICAL HEALTH DETERIORATION [None]
  - EMOTIONAL DISTRESS [None]
